FAERS Safety Report 17261732 (Version 1)
Quarter: 2020Q1

REPORT INFORMATION
  Report Type: Spontaneous
  Country: MX (occurrence: MX)
  Receive Date: 20200113
  Receipt Date: 20200113
  Transmission Date: 20200409
  Serious: Yes (Disabling)
  Sender: FDA-Public Use
  Company Number: MX-ROCHE-2519839

PATIENT
  Sex: Male

DRUGS (3)
  1. PIASCLEDINE [GLYCINE MAX SEED OIL;PERSEA AMERICANA OIL] [Concomitant]
     Active Substance: AVOCADO OIL\SOYBEAN OIL
     Route: 065
  2. ARCOXIA [Concomitant]
     Active Substance: ETORICOXIB
     Indication: INFLAMMATION
     Dosage: IN CASE OF INFLAMMATION
     Route: 065
  3. MABTHERA [Suspect]
     Active Substance: RITUXIMAB
     Indication: RHEUMATOID ARTHRITIS
     Dosage: 2 ADMINISTRATIONS IN ONE MONTH AND THEN EVERY 10 MONTHS AS THE PHYSICIAN INDICATES
     Route: 041

REACTIONS (1)
  - Loss of personal independence in daily activities [Unknown]
